FAERS Safety Report 5919270-3 (Version None)
Quarter: 2008Q4

REPORT INFORMATION
  Report Type: 
  Country: None (occurrence: None)
  Receive Date: 20081015
  Receipt Date: 20081006
  Transmission Date: 20090506
  Serious: Yes (Other)
  Sender: FDA-Public Use
  Company Number: PHHY2008DE22647

PATIENT
  Age: 72 Year
  Sex: Male

DRUGS (2)
  1. PROVAS MAXX [Suspect]
     Dosage: 160
     Dates: start: 20070101, end: 20080901
  2. PROVAS MAXX [Suspect]
     Dosage: 320
     Dates: start: 20080901

REACTIONS (3)
  - GASTRITIS EROSIVE [None]
  - GASTRITIS HAEMORRHAGIC [None]
  - GASTROINTESTINAL MUCOSAL DISORDER [None]
